FAERS Safety Report 21265460 (Version 1)
Quarter: 2022Q3

REPORT INFORMATION
  Report Type: Spontaneous
  Country: US (occurrence: None)
  Receive Date: 20220826
  Receipt Date: 20220826
  Transmission Date: 20221026
  Serious: Yes (Other)
  Sender: FDA-Public Use
  Company Number: None

PATIENT
  Age: 25 Year
  Sex: Male
  Weight: 85.5 kg

DRUGS (1)
  1. CAFFEINE\DIETARY SUPPLEMENT [Suspect]
     Active Substance: CAFFEINE\DIETARY SUPPLEMENT
     Dates: start: 20220501, end: 20220810

REACTIONS (4)
  - Formication [None]
  - Hyperhidrosis [None]
  - Palpitations [None]
  - Drug dependence [None]
